FAERS Safety Report 21520689 (Version 1)
Quarter: 2022Q4

REPORT INFORMATION
  Report Type: Spontaneous
  Country: DE (occurrence: DE)
  Receive Date: 20221028
  Receipt Date: 20221028
  Transmission Date: 20230113
  Serious: Yes (Disabling, Other)
  Sender: FDA-Public Use
  Company Number: None

PATIENT
  Age: 22 Year
  Sex: Female
  Weight: 60 kg

DRUGS (1)
  1. CYTOTEC [Suspect]
     Active Substance: MISOPROSTOL
     Indication: Labour induction
     Dosage: 1 TABLET IN 2 PARTS
     Route: 048
     Dates: start: 20081018, end: 20081018

REACTIONS (7)
  - Infertility female [Not Recovered/Not Resolved]
  - Hysterectomy [Unknown]
  - Uterine haemorrhage [Unknown]
  - Uterine atony [Recovered/Resolved with Sequelae]
  - Uterine tachysystole [Unknown]
  - Off label use [Unknown]
  - Drug ineffective for unapproved indication [Unknown]

NARRATIVE: CASE EVENT DATE: 20081018
